FAERS Safety Report 8398134-2 (Version None)
Quarter: 2012Q2

REPORT INFORMATION
  Report Type: 
  Country: None (occurrence: None)
  Receive Date: 20120531
  Receipt Date: 20120522
  Transmission Date: 20120825
  Serious: Yes (Other)
  Sender: FDA-Public Use
  Company Number: PHHY2012HR043758

PATIENT
  Age: 82 Year
  Sex: Female
  Weight: 65 kg

DRUGS (16)
  1. VENTOLIN [Concomitant]
  2. RANITAL [Concomitant]
     Dosage: 150 MG, UNK
  3. ACYCLOVIR [Suspect]
     Indication: HERPES ZOSTER
     Dosage: 10 DF DAILY
     Route: 048
     Dates: start: 20110808, end: 20110902
  4. IBRUPROFEN [Suspect]
     Dosage: 600 MG, UNK
     Route: 048
  5. LYRICA [Concomitant]
  6. CERSON [Concomitant]
     Dosage: 5 MG, UNK
  7. AMITRIPTYLINE HCL [Suspect]
     Dosage: 10 MG DAILY
     Route: 048
     Dates: end: 20110902
  8. LIDOCAINE [Concomitant]
     Dosage: 1 DF, Q12H
     Dates: end: 20110902
  9. FLUTICASONE PROPIONATE/SALMETEROL [Concomitant]
     Indication: CHRONIC OBSTRUCTIVE PULMONARY DISEASE
     Dosage: 1 DF, Q12H
     Dates: start: 20110114
  10. TEGRETOL [Interacting]
     Indication: CRANIAL NERVE DISORDER
     Dosage: 2 DF DAILY
     Route: 048
     Dates: start: 20110817, end: 20110902
  11. OXAZEPAM [Suspect]
     Indication: PERSONALITY CHANGE DUE TO A GENERAL MEDICAL CONDITION
     Dosage: 2 DF DAILY
     Route: 048
     Dates: start: 20110114, end: 20110902
  12. BISOPROLOL FUMARATE [Concomitant]
     Indication: ESSENTIAL HYPERTENSION
     Dosage: 2.5 MG, QD
     Route: 048
     Dates: start: 20110114
  13. TRAMADOL HCL [Interacting]
     Dates: start: 20110801, end: 20110902
  14. TRANDOLAPRIL [Concomitant]
     Dosage: 1 DF DAILY
     Route: 048
     Dates: start: 20110114
  15. VOLTAREN [Suspect]
     Route: 048
  16. TRAMADOL HYDROCHLORIDE [Concomitant]
     Dosage: 50 MG, UNK

REACTIONS (12)
  - HEPATIC ENCEPHALOPATHY [None]
  - JAUNDICE [None]
  - LOSS OF CONSCIOUSNESS [None]
  - DRUG-INDUCED LIVER INJURY [None]
  - DELIRIUM [None]
  - OCULAR ICTERUS [None]
  - AGGRESSION [None]
  - DRUG INTERACTION [None]
  - CIRCULATORY COLLAPSE [None]
  - IMPULSE-CONTROL DISORDER [None]
  - YELLOW SKIN [None]
  - UNRESPONSIVE TO STIMULI [None]
